FAERS Safety Report 18723455 (Version 1)
Quarter: 2021Q1

REPORT INFORMATION
  Report Type: Spontaneous
  Country: US (occurrence: US)
  Receive Date: 20210107
  Receipt Date: 20210107
  Transmission Date: 20210419
  Serious: Yes (Life-Threatening)
  Sender: FDA-Public Use
  Company Number: None

PATIENT
  Age: 67 Year
  Sex: Male

DRUGS (1)
  1. ANTI?THYMOCYTE GLOBULIN (ANTI?THYMOCYTE GLOBULIN (RABBIT) 25MG/VIL INJ [Suspect]
     Active Substance: LAPINE T-LYMPHOCYTE IMMUNE GLOBULIN
     Dosage: ?          OTHER STRENGTH:25MG/VIL;?
     Dates: end: 20201130

REACTIONS (2)
  - Cardio-respiratory arrest [None]
  - Pulseless electrical activity [None]

NARRATIVE: CASE EVENT DATE: 20201130
